FAERS Safety Report 5682795-2 (Version None)
Quarter: 2008Q1

REPORT INFORMATION
  Report Type: 
  Country: None (occurrence: None)
  Receive Date: 20080327
  Receipt Date: 20080321
  Transmission Date: 20080703
  Serious: Yes (Hospitalization)
  Sender: FDA-Public Use
  Company Number: US-ASTRAZENECA-2008UW03274

PATIENT
  Age: 46 Year
  Sex: Female
  Weight: 44.1 kg

DRUGS (7)
  1. SEROQUEL [Suspect]
     Indication: DEPRESSION
     Route: 048
     Dates: start: 20071101, end: 20080201
  2. PROZAC [Concomitant]
  3. KADIAN [Concomitant]
  4. LORA TAB [Concomitant]
  5. PROPRANOLOL [Concomitant]
  6. GABAPENTIN [Concomitant]
  7. RELAFEN [Concomitant]

REACTIONS (9)
  - ABNORMAL BEHAVIOUR [None]
  - AMNESIA [None]
  - DEPRESSION [None]
  - DRUG SCREEN POSITIVE [None]
  - LACERATION [None]
  - PHYSICAL ASSAULT [None]
  - POLYSUBSTANCE DEPENDENCE [None]
  - SUICIDE ATTEMPT [None]
  - WEIGHT DECREASED [None]
